FAERS Safety Report 4732463-6 (Version None)
Quarter: 2005Q3

REPORT INFORMATION
  Report Type: 
  Country: None (occurrence: None)
  Receive Date: 20050801
  Receipt Date: 20050719
  Transmission Date: 20060218
  Serious: Yes (Hospitalization, Disabling, Other)
  Sender: FDA-Public Use
  Company Number: 2004116903

PATIENT
  Sex: Female

DRUGS (8)
  1. CELEBREX [Suspect]
     Indication: ARTHRITIS
     Dosage: 100 MG (100 MG, 1 IN 1 D), ORAL/SIX YEARS AGO
     Route: 048
  2. CELEBREX [Suspect]
     Indication: OSTEOARTHRITIS
     Dosage: 100 MG (100 MG, 1 IN 1 D), ORAL/SIX YEARS AGO
     Route: 048
  3. ACETYLSALICYLIC ACID SRT [Concomitant]
  4. LIPITOR [Concomitant]
  5. PEPCID [Concomitant]
  6. TOPROL-XL [Concomitant]
  7. MAVIK [Concomitant]
  8. HYDROCHLOROTHIAZIDE [Concomitant]

REACTIONS (14)
  - BLOOD DISORDER [None]
  - BRADYCARDIA [None]
  - DIZZINESS [None]
  - DRUG DOSE OMISSION [None]
  - DYSPEPSIA [None]
  - EXTRASYSTOLES [None]
  - FLUID RETENTION [None]
  - HEART RATE IRREGULAR [None]
  - HYPERTENSION [None]
  - OEDEMA PERIPHERAL [None]
  - POSTURE ABNORMAL [None]
  - SICK SINUS SYNDROME [None]
  - WALKING AID USER [None]
  - WEIGHT DECREASED [None]
